FAERS Safety Report 12981660 (Version 1)
Quarter: 2016Q4

REPORT INFORMATION
  Report Type: Report from Study
  Country: NL (occurrence: NL)
  Receive Date: 20161129
  Receipt Date: 20161129
  Transmission Date: 20170207
  Serious: Yes (Other)
  Sender: FDA-Public Use
  Company Number: NL-ROCHE-1857749

PATIENT

DRUGS (4)
  1. TELAPREVIR [Suspect]
     Active Substance: TELAPREVIR
     Indication: CHRONIC HEPATITIS C
     Route: 065
  2. RIBAVIRIN. [Suspect]
     Active Substance: RIBAVIRIN
     Indication: CHRONIC HEPATITIS C
     Route: 065
  3. PEG-INTERFERON ALFA 2A [Suspect]
     Active Substance: PEGINTERFERON ALFA-2A
     Indication: CHRONIC HEPATITIS C
     Route: 065
  4. BOCEPREVIR [Suspect]
     Active Substance: BOCEPREVIR
     Indication: CHRONIC HEPATITIS C
     Route: 065

REACTIONS (18)
  - Hepatobiliary disease [Unknown]
  - Nervous system disorder [Unknown]
  - Skin disorder [Unknown]
  - Reproductive tract disorder [Unknown]
  - Eye disorder [Unknown]
  - Nasal disorder [Unknown]
  - Cardiovascular disorder [Unknown]
  - Leukopenia [Unknown]
  - Anaemia [Unknown]
  - Endocrine disorder [Unknown]
  - Renal disorder [Unknown]
  - Ear disorder [Unknown]
  - Respiratory disorder [Unknown]
  - Gastrointestinal disorder [Unknown]
  - Mental disorder [Unknown]
  - Musculoskeletal disorder [Unknown]
  - Pancytopenia [Unknown]
  - Throat lesion [Unknown]
